FAERS Safety Report 5370891-9 (Version None)
Quarter: 2007Q2

REPORT INFORMATION
  Report Type: 
  Country: None (occurrence: None)
  Receive Date: 20070626
  Receipt Date: 20070611
  Transmission Date: 20071010
  Serious: Yes (Hospitalization)
  Sender: FDA-Public Use
  Company Number: US-JNJFOC-20060903696

PATIENT
  Sex: Female
  Weight: 88.45 kg

DRUGS (3)
  1. ORTHO EVRA [Suspect]
     Indication: DRUG USE FOR UNKNOWN INDICATION
  2. OXYCONTIN [Concomitant]
     Indication: PAIN
  3. PHENERGAN HCL [Concomitant]
     Indication: DRUG USE FOR UNKNOWN INDICATION

REACTIONS (2)
  - BENIGN INTRACRANIAL HYPERTENSION [None]
  - INTRACRANIAL VENOUS SINUS THROMBOSIS [None]
